FAERS Safety Report 5885637-5 (Version None)
Quarter: 2008Q3

REPORT INFORMATION
  Report Type: 
  Country: None (occurrence: None)
  Receive Date: 20080912
  Receipt Date: 20080902
  Transmission Date: 20090109
  Serious: Yes (Hospitalization)
  Sender: FDA-Public Use
  Company Number: GXKR2008GB08405

PATIENT
  Age: 50 Year
  Sex: Female

DRUGS (3)
  1. OLANZAPINE [Suspect]
     Dosage: 700 MG, ONCE/SINGLE, ORAL; 20 MG, QD, ORAL
     Route: 048
  2. DIAZEPAM [Suspect]
     Dosage: 20 MG, ONCE/SINGLE, ORAL; 2 MG, QH, ORAL
     Route: 048
  3. PROPRANOLOL [Suspect]
     Dosage: 960 MG, ONCE/SINGLE, ORAL; 40 MG, BID, ORAL
     Route: 048

REACTIONS (7)
  - AREFLEXIA [None]
  - BLOOD CREATINE PHOSPHOKINASE INCREASED [None]
  - BODY TEMPERATURE INCREASED [None]
  - COMA [None]
  - DRUG TOXICITY [None]
  - OVERDOSE [None]
  - RESPIRATORY DEPRESSION [None]
